FAERS Safety Report 14629487 (Version 1)
Quarter: 2018Q1

REPORT INFORMATION
  Report Type: Spontaneous
  Country: IT (occurrence: IT)
  Receive Date: 20180313
  Receipt Date: 20180313
  Transmission Date: 20180509
  Serious: Yes (Other)
  Sender: FDA-Public Use
  Company Number: IT-AMGEN-ITASP2018032976

PATIENT
  Age: 4 Year
  Sex: Female

DRUGS (2)
  1. FILGRASTIM [Suspect]
     Active Substance: FILGRASTIM
     Indication: PNEUMONIA
     Dosage: 3.5 MUG/KG, QD
     Route: 065
  2. AMOXICILLIN AND CLAVULANATE POTASSIU. [Concomitant]
     Indication: PROPHYLAXIS
     Dosage: UNK

REACTIONS (5)
  - Pneumonia [Unknown]
  - Thrombocytopenia [Unknown]
  - Anaemia [Unknown]
  - Hypogammaglobulinaemia [Unknown]
  - Off label use [Unknown]
